FAERS Safety Report 9707688 (Version 1)
Quarter: 2013Q4

REPORT INFORMATION
  Report Type: Spontaneous
  Country: US (occurrence: US)
  Receive Date: 20131125
  Receipt Date: 20131125
  Transmission Date: 20140711
  Serious: No
  Sender: FDA-Public Use
  Company Number: US-PFIZER INC-2013332912

PATIENT
  Sex: Female

DRUGS (1)
  1. ADVIL [Suspect]
     Dosage: UNK, ONCE
     Dates: start: 20131119, end: 20131119

REACTIONS (3)
  - Accidental exposure to product [Unknown]
  - Dysgeusia [Unknown]
  - Product taste abnormal [Unknown]
